FAERS Safety Report 5572542-7 (Version None)
Quarter: 2007Q4

REPORT INFORMATION
  Report Type: 
  Country: None (occurrence: None)
  Receive Date: 20071222
  Receipt Date: 20071211
  Transmission Date: 20080405
  Serious: Yes (Death)
  Sender: FDA-Public Use
  Company Number: JP-PFIZER INC-2007074477

PATIENT
  Sex: Female
  Weight: 50 kg

DRUGS (3)
  1. CAMPTO [Suspect]
     Indication: GASTRIC CANCER
     Dosage: DAILY DOSE:80MG
     Route: 042
     Dates: start: 20070613, end: 20070627
  2. CAMPTO [Suspect]
     Route: 042
     Dates: start: 20070711, end: 20070808
  3. TEGAFUR/GIMERACIL/OTERACIL POTASSIUM [Suspect]
     Indication: GASTRIC CANCER
     Route: 048
     Dates: start: 20070404, end: 20070820

REACTIONS (1)
  - PULMONARY EMBOLISM [None]
